FAERS Safety Report 8171885-0 (Version None)
Quarter: 2012Q1

REPORT INFORMATION
  Report Type: 
  Country: None (occurrence: None)
  Receive Date: 20120228
  Receipt Date: 20120224
  Transmission Date: 20120608
  Serious: Yes (Other)
  Sender: FDA-Public Use
  Company Number: US-PFIZER INC-2012051170

PATIENT
  Sex: Male

DRUGS (5)
  1. ACETYLSALICYLIC ACID [Concomitant]
     Dosage: UNK
  2. ENALAPRIL [Concomitant]
     Dosage: UNK
  3. METOPROLOL TARTRATE [Concomitant]
     Dosage: UNK
  4. TRIAMTERENE AND HYDROCHLOROTHIAZIDE [Concomitant]
     Dosage: UNK
  5. LIPITOR [Suspect]
     Dosage: 20 MG, 1X/DAY
     Route: 048

REACTIONS (1)
  - CEREBROVASCULAR ACCIDENT [None]
